FAERS Safety Report 11409857 (Version 1)
Quarter: 2015Q3

REPORT INFORMATION
  Report Type: Spontaneous
  Country: US (occurrence: None)
  Receive Date: 20150820
  Receipt Date: 20150820
  Transmission Date: 20151125
  Serious: Yes (Other)
  Sender: FDA-Public Use
  Company Number: None

PATIENT
  Age: 52 Year
  Sex: Female

DRUGS (1)
  1. HUMIRA [Suspect]
     Active Substance: ADALIMUMAB
     Indication: RHEUMATOID ARTHRITIS
     Dosage: 40MG, EVERY 2 WEEKS, SC
     Route: 058
     Dates: start: 20150127

REACTIONS (2)
  - Nausea [None]
  - Alopecia [None]

NARRATIVE: CASE EVENT DATE: 20150723
